FAERS Safety Report 10096128 (Version 1)
Quarter: 2014Q2

REPORT INFORMATION
  Report Type: Spontaneous
  Country: US (occurrence: None)
  Receive Date: 20140410
  Receipt Date: 20140410
  Transmission Date: 20141212
  Serious: Yes (Hospitalization)
  Sender: FDA-Public Use
  Company Number: 2013-US-001453

PATIENT
  Age: 45 Year
  Sex: Male

DRUGS (1)
  1. CLOZAPINE USP, ODT (CLOZAPINE, USP) TABLET, MG [Suspect]
     Indication: PSYCHOTIC DISORDER
     Dates: start: 20130130, end: 20131021

REACTIONS (2)
  - Psychotic disorder [None]
  - Treatment noncompliance [None]
